FAERS Safety Report 7589870-6 (Version None)
Quarter: 2011Q3

REPORT INFORMATION
  Report Type: 
  Country: None (occurrence: None)
  Receive Date: 20110705
  Receipt Date: 20110629
  Transmission Date: 20111222
  Serious: Yes (Hospitalization)
  Sender: FDA-Public Use
  Company Number: FR-MERCK-0910FRA00066

PATIENT
  Age: 66 Year
  Sex: Male
  Weight: 91 kg

DRUGS (10)
  1. METFORMIN HYDROCHLORIDE [Concomitant]
     Route: 065
  2. AMLODIPINE BESYLATE [Concomitant]
     Route: 065
  3. CAPTOPRIL AND HYDROCHLOROTHIAZIDE [Concomitant]
     Route: 065
     Dates: end: 20090915
  4. ATORVASTATIN CALCIUM [Concomitant]
     Route: 065
  5. GLYBURIDE [Concomitant]
     Route: 065
     Dates: end: 20090915
  6. HERBS (UNSPECIFIED) [Concomitant]
     Route: 048
  7. IRBESARTAN + HYDROCHLOROTHIAZIDE [Suspect]
     Indication: HYPERTENSION
     Route: 048
     Dates: start: 20090916, end: 20090925
  8. RILMENIDINE PHOSPHATE [Concomitant]
     Route: 065
  9. JANUVIA [Suspect]
     Indication: TYPE 2 DIABETES MELLITUS
     Route: 048
     Dates: start: 20090916, end: 20090925
  10. GLIMEPIRIDE [Suspect]
     Indication: TYPE 2 DIABETES MELLITUS
     Route: 048
     Dates: start: 20090916, end: 20090925

REACTIONS (3)
  - PANCREATITIS ACUTE [None]
  - VITAMIN D DEFICIENCY [None]
  - RENAL FAILURE ACUTE [None]
